FAERS Safety Report 13757081 (Version 2)
Quarter: 2017Q3

REPORT INFORMATION
  Report Type: Spontaneous
  Country: AT (occurrence: AT)
  Receive Date: 20170715
  Receipt Date: 20170901
  Transmission Date: 20171127
  Serious: Yes (Other)
  Sender: FDA-Public Use
  Company Number: AT-009507513-1707AUT002773

PATIENT
  Age: 48 Year
  Sex: Male
  Weight: 125 kg

DRUGS (3)
  1. RIFOLDIN [Concomitant]
     Active Substance: RIFAMPIN
     Indication: ARTHRITIS INFECTIVE
     Dosage: 450 (UNITS NOT PROVIDED), BID
     Route: 048
     Dates: start: 20170309, end: 20170420
  2. MOXIFLOXACIN. [Concomitant]
     Active Substance: MOXIFLOXACIN
     Indication: ARTHRITIS INFECTIVE
     Dosage: 400 (UNITS NOT PROVIDED), QD
     Route: 048
     Dates: start: 20170306, end: 20170417
  3. CUBICIN [Suspect]
     Active Substance: DAPTOMYCIN
     Indication: ARTHRITIS INFECTIVE
     Dosage: 1000 MG, QD
     Route: 042
     Dates: start: 20170306, end: 20170323

REACTIONS (1)
  - Pneumonia [Recovered/Resolved]

NARRATIVE: CASE EVENT DATE: 20170320
